FAERS Safety Report 23189934 (Version 2)
Quarter: 2024Q1

REPORT INFORMATION
  Report Type: Spontaneous
  Country: ES (occurrence: ES)
  Receive Date: 20231116
  Receipt Date: 20240107
  Transmission Date: 20240410
  Serious: Yes (Other)
  Sender: FDA-Public Use
  Company Number: ES-CELLTRION INC.-2023ES022029

PATIENT

DRUGS (20)
  1. BEVACIZUMAB [Suspect]
     Active Substance: BEVACIZUMAB
     Indication: Ovarian cancer
     Dosage: 7.5 MILLIGRAM/SQ. METER, EVERY 21 DAYS, CYCLICAL
     Route: 065
     Dates: start: 201509, end: 201701
  2. BEVACIZUMAB [Suspect]
     Active Substance: BEVACIZUMAB
     Dosage: 7.5 MG/KG/ THIRD CYCLE
     Route: 065
     Dates: start: 201811
  3. TRABECTEDIN [Suspect]
     Active Substance: TRABECTEDIN
     Indication: Ovarian cancer
     Dosage: 1.1 MILLIGRAM/SQ. METER
     Route: 065
     Dates: start: 201909
  4. CARBOPLATIN [Suspect]
     Active Substance: CARBOPLATIN
     Indication: Ovarian cancer
     Dosage: AUC 5
     Route: 065
     Dates: start: 201509
  5. CARBOPLATIN [Suspect]
     Active Substance: CARBOPLATIN
     Dosage: AUC 5 ON DAY 1
     Route: 065
     Dates: start: 201704
  6. PACLITAXEL [Suspect]
     Active Substance: PACLITAXEL
     Indication: Ovarian cancer
     Dosage: 175 MILLIGRAM/SQ. METER
     Route: 065
     Dates: start: 201509
  7. PACLITAXEL [Suspect]
     Active Substance: PACLITAXEL
     Dosage: UNK
     Route: 033
     Dates: start: 201601
  8. PACLITAXEL [Suspect]
     Active Substance: PACLITAXEL
     Dosage: 80 MILLIGRAM/SQ. METER, ONE PER WEEK, CYCLICAL/ FIFTH LINE
     Route: 065
     Dates: start: 202004
  9. DOXORUBICIN [Suspect]
     Active Substance: DOXORUBICIN
     Indication: Ovarian cancer
     Dosage: 30 MILLIGRAM/SQ. METER, EVERY 21 DAYS, CYCLICAL
     Route: 065
     Dates: start: 201909
  10. OLAPARIB [Suspect]
     Active Substance: OLAPARIB
     Indication: Ovarian cancer
     Dosage: 50 MILLIGRAM, EVERY 12 HOURS
     Route: 065
     Dates: start: 201704
  11. ATEZOLIZUMAB [Suspect]
     Active Substance: ATEZOLIZUMAB
     Indication: Ovarian cancer
     Dosage: 1200 MILLIGRAM EVERY 21 DAYS
     Route: 065
  12. GEMCITABINE [Suspect]
     Active Substance: GEMCITABINE
     Indication: Ovarian cancer
     Dosage: 1000 MG/M2
     Route: 065
     Dates: start: 201704
  13. LEVOTHYROXINE [Concomitant]
     Active Substance: LEVOTHYROXINE
     Indication: Hypothyroidism
     Dosage: 50 MG, QD
     Route: 065
  14. HYDROCHLOROTHIAZIDE\IRBESARTAN [Concomitant]
     Active Substance: HYDROCHLOROTHIAZIDE\IRBESARTAN
     Indication: Hypertension
     Route: 065
  15. CISPLATIN [Concomitant]
     Active Substance: CISPLATIN
     Indication: Ovarian cancer
     Route: 065
  16. ROSUVASTATIN [Concomitant]
     Active Substance: ROSUVASTATIN
     Indication: Hypercholesterolaemia
     Dosage: 10 MG, QD
     Route: 065
  17. GEMCITABINE [Concomitant]
     Active Substance: GEMCITABINE
     Indication: Ovarian cancer
     Dosage: 1000 MILLIGRAM/SQ. METER, ON DAYS 1 AND 8 EVERY 3 WEEKS CYCLICAL
     Route: 065
     Dates: start: 201704
  18. ATEZOLIZUMAB [Concomitant]
     Active Substance: ATEZOLIZUMAB
     Indication: Ovarian cancer
     Dosage: 1200 MG, 21 DAY, CYCLICAL
     Route: 065
     Dates: start: 201811
  19. TRABECTEDIN [Concomitant]
     Active Substance: TRABECTEDIN
     Indication: Ovarian cancer
     Dosage: (1.1 MG/M2) + PLD (30 MG/M2)/ EVERY 21 DAYS
     Dates: start: 201909
  20. TOPOTECAN [Concomitant]
     Active Substance: TOPOTECAN HYDROCHLORIDE
     Dosage: 4 MG/M2, Q4WEEKS/ ON DAYS 1, 8, AND 15

REACTIONS (8)
  - Asthenia [Unknown]
  - Anaemia [Unknown]
  - Anaphylactic reaction [Unknown]
  - Vomiting [Unknown]
  - Hypersensitivity [Unknown]
  - Nausea [Unknown]
  - Drug ineffective [Unknown]
  - Anaemia [Unknown]

NARRATIVE: CASE EVENT DATE: 20150101
